FAERS Safety Report 9738603 (Version 4)
Quarter: 2014Q2

REPORT INFORMATION
  Report Type: Spontaneous
  Country: DK (occurrence: DK)
  Receive Date: 20131209
  Receipt Date: 20140417
  Transmission Date: 20141212
  Serious: Yes (Hospitalization, Disabling, Other)
  Sender: FDA-Public Use
  Company Number: DK-ROCHE-1310935

PATIENT
  Age: 57 Year
  Sex: Male

DRUGS (1)
  1. PEGASYS [Suspect]
     Indication: ESSENTIAL THROMBOCYTHAEMIA
     Route: 065
     Dates: start: 20120224, end: 20130227

REACTIONS (22)
  - Varices oesophageal [Recovering/Resolving]
  - Abdominal pain [Unknown]
  - Pancreatitis acute [Recovered/Resolved with Sequelae]
  - Malaise [Unknown]
  - Skin discolouration [Unknown]
  - Gastric varices haemorrhage [Recovering/Resolving]
  - Off label use [Unknown]
  - Pancreatitis [Recovered/Resolved with Sequelae]
  - Thrombocytosis [Recovering/Resolving]
  - Hepatic vein thrombosis [Recovering/Resolving]
  - Dialysis [Unknown]
  - Pancreatic injury [Not Recovered/Not Resolved]
  - Pneumonia [Recovered/Resolved]
  - Endotracheal intubation [Recovered/Resolved]
  - Hyperhidrosis [Unknown]
  - Renal function test abnormal [Unknown]
  - Dyspnoea [Unknown]
  - Pallor [Unknown]
  - Pancreatic necrosis [Recovering/Resolving]
  - Productive cough [Recovered/Resolved]
  - Chest pain [Unknown]
  - Thrombosis [Recovering/Resolving]
